FAERS Safety Report 6194189-4 (Version None)
Quarter: 2009Q2

REPORT INFORMATION
  Report Type: 
  Country: None (occurrence: None)
  Receive Date: 20090518
  Receipt Date: 20090511
  Transmission Date: 20091009
  Serious: Yes (Other)
  Sender: FDA-Public Use
  Company Number: US-JNJCH-2009013125

PATIENT
  Age: 15 Year
  Sex: Male
  Weight: 47.6 kg

DRUGS (1)
  1. COOL MINT LISTERINE POCKETPAKS [Suspect]
     Indication: DENTAL DISORDER PROPHYLAXIS
     Dosage: TEXT:1 STRIP 3 TIMES
     Route: 048
     Dates: start: 20090511, end: 20090511

REACTIONS (2)
  - HYPERSENSITIVITY [None]
  - THROAT TIGHTNESS [None]
